FAERS Safety Report 25271035 (Version 1)
Quarter: 2025Q2

REPORT INFORMATION
  Report Type: Spontaneous
  Country: US (occurrence: US)
  Receive Date: 20250506
  Receipt Date: 20250506
  Transmission Date: 20250716
  Serious: Yes (Hospitalization, Other)
  Sender: JAZZ
  Company Number: US-JAZZ PHARMACEUTICALS-2025-US-010915

PATIENT
  Age: 8 Year
  Sex: Male

DRUGS (1)
  1. EPIDIOLEX [Suspect]
     Active Substance: CANNABIDIOL
     Indication: Product used for unknown indication

REACTIONS (8)
  - Rhinovirus infection [Unknown]
  - Ketoacidosis [Unknown]
  - Aspiration [Unknown]
  - Blood glucose abnormal [Unknown]
  - Fatigue [Recovered/Resolved]
  - Multi-vitamin deficiency [Unknown]
  - Vomiting [Unknown]
  - Dehydration [Unknown]

NARRATIVE: CASE EVENT DATE: 20250201
